FAERS Safety Report 14095403 (Version 1)
Quarter: 2017Q4

REPORT INFORMATION
  Report Type: Spontaneous
  Country: HK (occurrence: HK)
  Receive Date: 20171017
  Receipt Date: 20171017
  Transmission Date: 20180321
  Serious: Yes (Other)
  Sender: FDA-Public Use
  Company Number: HK-ROCHE-2006010

PATIENT
  Age: 65 Year
  Sex: Male

DRUGS (1)
  1. GAZYVA [Suspect]
     Active Substance: OBINUTUZUMAB
     Indication: PRODUCT USED FOR UNKNOWN INDICATION
     Route: 065
     Dates: start: 20160421

REACTIONS (3)
  - Platelet count decreased [Unknown]
  - Lymphocyte count decreased [Unknown]
  - White blood cell count decreased [Unknown]
